FAERS Safety Report 10741339 (Version 1)
Quarter: 2015Q1

REPORT INFORMATION
  Report Type: Spontaneous
  Country: US (occurrence: US)
  Receive Date: 20150127
  Receipt Date: 20150127
  Transmission Date: 20150721
  Serious: Yes (Other)
  Sender: FDA-Public Use
  Company Number: US-BAYER-2015-008134

PATIENT
  Age: 31 Year
  Sex: Female

DRUGS (1)
  1. MIRENA [Suspect]
     Active Substance: LEVONORGESTREL
     Dosage: 20 MCG/24HR, CONT
     Route: 015
     Dates: start: 20120407, end: 20130129

REACTIONS (10)
  - CSF pressure increased [None]
  - Visual impairment [None]
  - Dizziness [None]
  - Pain [None]
  - Diplopia [None]
  - Device defective [None]
  - Headache [None]
  - Papilloedema [None]
  - Benign intracranial hypertension [None]
  - Injury [None]

NARRATIVE: CASE EVENT DATE: 201301
